FAERS Safety Report 10556340 (Version 1)
Quarter: 2014Q4

REPORT INFORMATION
  Report Type: Report from Study
  Country: BR (occurrence: BR)
  Receive Date: 20141031
  Receipt Date: 20141031
  Transmission Date: 20150529
  Serious: Yes (Hospitalization, Other)
  Sender: FDA-Public Use
  Company Number: BR-BIOGENIDEC-2014BI112872

PATIENT
  Age: 43 Year
  Sex: Female

DRUGS (3)
  1. AVONEX [Suspect]
     Active Substance: INTERFERON BETA-1A
     Indication: MULTIPLE SCLEROSIS
     Route: 030
  2. AVONEX [Suspect]
     Active Substance: INTERFERON BETA-1A
     Indication: MULTIPLE SCLEROSIS
     Route: 030
     Dates: start: 20111002
  3. TIMOLOL [Concomitant]
     Active Substance: TIMOLOL
     Indication: GLAUCOMA

REACTIONS (5)
  - Varicose vein [Not Recovered/Not Resolved]
  - Headache [Recovered/Resolved]
  - Thrombosis [Not Recovered/Not Resolved]
  - Intestinal resection [Recovered/Resolved]
  - Hysterosalpingectomy [Recovered/Resolved]
